FAERS Safety Report 5831560-1 (Version None)
Quarter: 2008Q3

REPORT INFORMATION
  Report Type: 
  Country: None (occurrence: None)
  Receive Date: 20080730
  Receipt Date: 20080725
  Transmission Date: 20090109
  Serious: Yes (Other)
  Sender: FDA-Public Use
  Company Number: 030889

PATIENT
  Age: 31 Year
  Sex: Male

DRUGS (6)
  1. CARBOPLATIN [Suspect]
     Indication: CHEMOTHERAPY
     Dosage: HIGH DOSE (ONE CYCLE),; ONE CYCLE,
  2. CISPLATIN [Suspect]
     Indication: CHEMOTHERAPY
     Dosage: FOUR CYCLES,
  3. BLEOMYCIN SULFATE [Suspect]
     Dosage: FOUR CYCLES,
  4. ETOPOSIDE [Suspect]
     Dosage: FOUR CYCLES,
  5. VINBLASTINE SULFATE [Suspect]
     Indication: CHEMOTHERAPY
     Dosage: ONE CYCLE,
  6. IFOSFAMIDE [Suspect]
     Indication: CHEMOTHERAPY
     Dosage: ONE CYCLE,

REACTIONS (3)
  - METASTASES TO LUNG [None]
  - NEUROTOXICITY [None]
  - PROGRESSIVE MULTIFOCAL LEUKOENCEPHALOPATHY [None]
